FAERS Safety Report 6507832-4 (Version None)
Quarter: 2009Q4

REPORT INFORMATION
  Report Type: 
  Country: None (occurrence: None)
  Receive Date: 20091221
  Receipt Date: 20091208
  Transmission Date: 20100525
  Serious: Yes (Death, Hospitalization)
  Sender: FDA-Public Use
  Company Number: A0805750A

PATIENT
  Age: 44 Year
  Sex: Male

DRUGS (1)
  1. AVANDAMET [Suspect]
     Route: 048
     Dates: start: 20041101, end: 20050201

REACTIONS (1)
  - ACUTE MYOCARDIAL INFARCTION [None]
